FAERS Safety Report 24110595 (Version 1)
Quarter: 2024Q3

REPORT INFORMATION
  Report Type: Spontaneous
  Country: US (occurrence: None)
  Receive Date: 20240717
  Receipt Date: 20240717
  Transmission Date: 20241016
  Serious: Yes (Hospitalization)
  Sender: Public
  Company Number: None

PATIENT
  Age: 37 Year
  Sex: Female
  Weight: 142.65 kg

DRUGS (1)
  1. SAPHNELO [Suspect]
     Active Substance: ANIFROLUMAB-FNIA
     Indication: Systemic lupus erythematosus
     Dosage: OTHER FREQUENCY : ONCE;?
     Route: 042
     Dates: start: 20240305, end: 20240305

REACTIONS (3)
  - Seizure [None]
  - Loss of consciousness [None]
  - Tremor [None]

NARRATIVE: CASE EVENT DATE: 20240319
